FAERS Safety Report 17459336 (Version 3)
Quarter: 2021Q3

REPORT INFORMATION
  Report Type: Spontaneous
  Country: IN (occurrence: IN)
  Receive Date: 20200226
  Receipt Date: 20210819
  Transmission Date: 20211014
  Serious: Yes (Death, Hospitalization)
  Sender: FDA-Public Use
  Company Number: IN-PFIZER INC-2020084973

PATIENT
  Age: 50 Year
  Sex: Female

DRUGS (1)
  1. PALBACE [Suspect]
     Active Substance: PALBOCICLIB
     Indication: BREAST CANCER METASTATIC
     Dosage: 125 MG, 1X/DAY
     Route: 048
     Dates: start: 20180419, end: 202011

REACTIONS (4)
  - Somnolence [Unknown]
  - Death [Fatal]
  - Gene mutation [Unknown]
  - Arthralgia [Unknown]

NARRATIVE: CASE EVENT DATE: 20210720
